FAERS Safety Report 23158632 (Version 1)
Quarter: 2023Q4

REPORT INFORMATION
  Report Type: Spontaneous
  Country: JP (occurrence: JP)
  Receive Date: 20231108
  Receipt Date: 20231108
  Transmission Date: 20240109
  Serious: Yes (Other)
  Sender: FDA-Public Use
  Company Number: JP-BRISTOL-MYERS SQUIBB COMPANY-2023-156696

PATIENT
  Age: 72 Year
  Sex: Female

DRUGS (7)
  1. ORENCIA [Suspect]
     Active Substance: ABATACEPT
     Indication: Ocular hyperaemia
  2. ORENCIA [Suspect]
     Active Substance: ABATACEPT
     Indication: Rheumatoid arthritis
  3. BETAMETHASONE [Suspect]
     Active Substance: BETAMETHASONE
     Indication: Ocular hyperaemia
  4. PREDNISOLONE [Suspect]
     Active Substance: PREDNISOLONE
     Indication: Ocular hyperaemia
     Route: 048
  5. METHOTREXATE [Concomitant]
     Active Substance: METHOTREXATE
     Indication: Rheumatoid arthritis
  6. TACROLIMUS [Concomitant]
     Active Substance: TACROLIMUS
     Indication: Rheumatoid scleritis
  7. BROMFENAC [Concomitant]
     Active Substance: BROMFENAC SODIUM
     Indication: Rheumatoid scleritis

REACTIONS (2)
  - Infective scleritis [Recovering/Resolving]
  - Eye infection fungal [Recovering/Resolving]
